FAERS Safety Report 4702415-0 (Version None)
Quarter: 2005Q2

REPORT INFORMATION
  Report Type: 
  Country: None (occurrence: None)
  Receive Date: 20050629
  Receipt Date: 20050617
  Transmission Date: 20051028
  Serious: Yes (Other)
  Sender: FDA-Public Use
  Company Number: US-NOVOPROD-244935

PATIENT
  Sex: Female

DRUGS (6)
  1. ACTIVELLA [Suspect]
     Indication: HORMONE REPLACEMENT THERAPY
     Dosage: UNKNOWN
  2. PREMARIN [Suspect]
     Indication: HORMONE REPLACEMENT THERAPY
  3. CYCRIN [Suspect]
     Indication: HORMONE REPLACEMENT THERAPY
  4. CLIMARA ^BERLEX^ [Suspect]
     Indication: HORMONE REPLACEMENT THERAPY
  5. PROMETRIUM [Suspect]
     Indication: HORMONE REPLACEMENT THERAPY
  6. MEDROXYPROGESTERONE ACETATE [Suspect]
     Indication: HORMONE REPLACEMENT THERAPY

REACTIONS (1)
  - OVARIAN CANCER [None]
